FAERS Safety Report 22317970 (Version 1)
Quarter: 2023Q2

REPORT INFORMATION
  Report Type: Spontaneous
  Country: US (occurrence: US)
  Receive Date: 20230515
  Receipt Date: 20230515
  Transmission Date: 20230722
  Serious: No
  Sender: FDA-Public Use
  Company Number: US-UCBSA-2022013777

PATIENT
  Age: 74 Year
  Sex: Male

DRUGS (2)
  1. NEUPRO [Suspect]
     Active Substance: ROTIGOTINE
     Indication: Parkinson^s disease
     Dosage: UNKNOWN DOSE
     Route: 062
     Dates: start: 2014
  2. NEUPRO [Suspect]
     Active Substance: ROTIGOTINE
     Dosage: 1 MILLIGRAM, ONCE DAILY (QD)
     Route: 062

REACTIONS (4)
  - Peripheral swelling [Not Recovered/Not Resolved]
  - Erythema [Not Recovered/Not Resolved]
  - Hypersensitivity [Unknown]
  - Underdose [Unknown]

NARRATIVE: CASE EVENT DATE: 20140101
